FAERS Safety Report 11492259 (Version 1)
Quarter: 2015Q3

REPORT INFORMATION
  Report Type: Spontaneous
  Country: US (occurrence: US)
  Receive Date: 20150910
  Receipt Date: 20150910
  Transmission Date: 20151125
  Serious: No
  Sender: FDA-Public Use
  Company Number: US-PFIZER INC-2015297268

PATIENT
  Age: 28 Year
  Sex: Male
  Weight: 62 kg

DRUGS (2)
  1. VICODIN [Concomitant]
     Active Substance: ACETAMINOPHEN\HYDROCODONE BITARTRATE
     Dosage: UNK
  2. VIAGRA [Suspect]
     Active Substance: SILDENAFIL CITRATE
     Dosage: 100 MG, 1X/DAY (BLUE PILL)
     Dates: start: 20150827

REACTIONS (2)
  - Flushing [Unknown]
  - Penile vascular disorder [Unknown]

NARRATIVE: CASE EVENT DATE: 20150903
